FAERS Safety Report 8128389-0 (Version None)
Quarter: 2012Q1

REPORT INFORMATION
  Report Type: 
  Country: None (occurrence: None)
  Receive Date: 20120210
  Receipt Date: 20120130
  Transmission Date: 20120608
  Serious: Yes (Other)
  Sender: FDA-Public Use
  Company Number: JP-UCBSA-050794

PATIENT
  Age: 38 Year
  Sex: Female

DRUGS (3)
  1. XYZAL [Suspect]
     Route: 048
     Dates: start: 20111201
  2. TEGRETOL [Concomitant]
     Indication: EPILEPSY
     Dosage: SAME DOSE FOR MANY YEARS
     Route: 048
  3. LAMICTAL [Suspect]
     Indication: EPILEPSY
     Route: 048
     Dates: start: 20111201

REACTIONS (1)
  - EPILEPSY [None]
